FAERS Safety Report 4802348-5 (Version None)
Quarter: 2005Q4

REPORT INFORMATION
  Report Type: 
  Country: None (occurrence: None)
  Receive Date: 20051012
  Receipt Date: 20051003
  Transmission Date: 20060501
  Serious: Yes (Hospitalization)
  Sender: FDA-Public Use
  Company Number: HQWYE809703OCT05

PATIENT
  Age: 14 Year
  Sex: Male

DRUGS (11)
  1. RAPAMUNE [Suspect]
     Indication: KIDNEY TRANSPLANT REJECTION
     Dosage: 4 MG 2X PER 1 DAY
     Route: 048
     Dates: start: 20040812
  2. PREDNISONE [Concomitant]
  3. MINOXIDIL [Concomitant]
  4. TACROLIMUS [Concomitant]
  5. LOSARTAN POTASSIUM [Concomitant]
  6. SODIUM CHLORIDE [Concomitant]
  7. FOSINOPRIL SODIUM [Concomitant]
  8. SEPTRA [Concomitant]
  9. SODIUM BICARBONATE [Concomitant]
  10. CALCITRIOL [Concomitant]
  11. ARANESP [Concomitant]

REACTIONS (6)
  - BLOOD CREATININE INCREASED [None]
  - BLOOD GLUCOSE INCREASED [None]
  - BLOOD POTASSIUM INCREASED [None]
  - COMPLICATIONS OF TRANSPLANTED KIDNEY [None]
  - DEHYDRATION [None]
  - GRAFT DYSFUNCTION [None]
